FAERS Safety Report 5737263-6 (Version None)
Quarter: 2008Q2

REPORT INFORMATION
  Report Type: 
  Country: None (occurrence: None)
  Receive Date: 20080514
  Receipt Date: 20080502
  Transmission Date: 20081010
  Serious: Yes (Hospitalization, Other)
  Sender: FDA-Public Use
  Company Number: US-AMGEN-US277340

PATIENT
  Sex: Female
  Weight: 59 kg

DRUGS (7)
  1. PROCRIT [Suspect]
     Indication: ANAEMIA
     Route: 065
     Dates: end: 20070101
  2. BONIVA [Concomitant]
     Route: 065
  3. BENAZEPRIL HYDROCHLORIDE [Concomitant]
     Route: 065
  4. LEVOXYL [Concomitant]
     Route: 065
  5. LOVASTATIN [Concomitant]
     Route: 065
  6. FELODIPINE [Concomitant]
     Route: 065
  7. HYDROCHLOROTHIAZIDE [Concomitant]
     Route: 065

REACTIONS (6)
  - ABASIA [None]
  - ANOREXIA [None]
  - ASTHENIA [None]
  - HAEMOGLOBIN DECREASED [None]
  - HEART RATE INCREASED [None]
  - RECTAL HAEMORRHAGE [None]
